FAERS Safety Report 4698216-2 (Version None)
Quarter: 2005Q2

REPORT INFORMATION
  Report Type: 
  Country: None (occurrence: None)
  Receive Date: 20050623
  Receipt Date: 20050613
  Transmission Date: 20051028
  Serious: Yes (Other)
  Sender: FDA-Public Use
  Company Number: US-JNJFOC-20050405003

PATIENT
  Sex: Female

DRUGS (3)
  1. RISPERDAL [Suspect]
  2. RISPERDAL [Suspect]
     Indication: MAJOR DEPRESSION
  3. PROZAC [Concomitant]

REACTIONS (4)
  - ABORTION INDUCED [None]
  - BLIGHTED OVUM [None]
  - DRUG EXPOSURE DURING PREGNANCY [None]
  - PREGNANCY [None]
